FAERS Safety Report 14561667 (Version 3)
Quarter: 2021Q4

REPORT INFORMATION
  Report Type: Spontaneous
  Country: US (occurrence: US)
  Receive Date: 20180222
  Receipt Date: 20211117
  Transmission Date: 20220304
  Serious: Yes (Disabling, Other)
  Sender: FDA-Public Use
  Company Number: US-TEVA-2018-US-862595

PATIENT
  Age: 70 Year
  Sex: Female
  Weight: 73.4 kg

DRUGS (13)
  1. DOCETAXEL [Suspect]
     Active Substance: DOCETAXEL
     Indication: Hormone receptor positive HER2 negative breast cancer
     Dosage: NUMBER OF CYCLE - 06, FREQUENCY - EVERY THREE WEEKS
     Route: 042
     Dates: start: 201306, end: 201309
  2. DOCETAXEL [Suspect]
     Active Substance: DOCETAXEL
     Indication: Hormone receptor positive HER2 negative breast cancer
     Dosage: NUMBER OF CYCLE - 06, FREQUENCY - EVERY THREE WEEKS
     Route: 042
     Dates: start: 20130601, end: 20130901
  3. DOCETAXEL [Suspect]
     Active Substance: DOCETAXEL
     Dosage: NUMBER OF CYCLE - 06, FREQUENCY - EVERY THREE WEEKS
     Route: 042
     Dates: start: 20130601, end: 20130901
  4. DOCETAXEL [Suspect]
     Active Substance: DOCETAXEL
     Dosage: NUMBER OF CYCLE - 06, FREQUENCY - EVERY THREE WEEKS
     Route: 042
     Dates: start: 20130601, end: 20130901
  5. DOCETAXEL [Suspect]
     Active Substance: DOCETAXEL
     Indication: Hormone receptor positive HER2 negative breast cancer
     Dosage: NUMBER OF CYCLE - 06, FREQUENCY - EVERY THREE WEEKS
     Route: 042
     Dates: start: 20130601, end: 20130901
  6. CYTOXAN [Suspect]
     Active Substance: CYCLOPHOSPHAMIDE
     Indication: Hormone receptor positive HER2 negative breast cancer
     Route: 065
  7. ADRIAMYCIN [Suspect]
     Active Substance: DOXORUBICIN HYDROCHLORIDE
     Indication: Hormone receptor positive HER2 negative breast cancer
     Route: 065
  8. LEVOTHYROXINE [Concomitant]
     Active Substance: LEVOTHYROXINE
     Dosage: 88 MICROGRAM DAILY;
     Route: 048
  9. LISINOPRIL [Concomitant]
     Active Substance: LISINOPRIL
     Route: 048
     Dates: end: 20160219
  10. IRON [Concomitant]
     Active Substance: IRON
     Route: 048
  11. VITAMIN D [Concomitant]
     Active Substance: VITAMIN D NOS
     Dosage: 2000 IU (INTERNATIONAL UNIT) DAILY;
     Route: 048
  12. ASPIRIN [Concomitant]
     Active Substance: ASPIRIN
     Dosage: 81 MILLIGRAM DAILY;
     Route: 048
     Dates: end: 20170825
  13. CALCIUM [Concomitant]
     Active Substance: CALCIUM
     Route: 048

REACTIONS (9)
  - Alopecia areata [Not Recovered/Not Resolved]
  - Madarosis [Unknown]
  - Neuropathy peripheral [Not Recovered/Not Resolved]
  - Osteopenia [Not Recovered/Not Resolved]
  - Hair texture abnormal [Not Recovered/Not Resolved]
  - Hair colour changes [Not Recovered/Not Resolved]
  - Diarrhoea [Unknown]
  - Headache [Unknown]
  - Insomnia [Unknown]

NARRATIVE: CASE EVENT DATE: 20131201
